FAERS Safety Report 4302999-0 (Version None)
Quarter: 2004Q1

REPORT INFORMATION
  Report Type: 
  Country: None (occurrence: None)
  Receive Date: 20040224
  Receipt Date: 20040209
  Transmission Date: 20041129
  Serious: Yes (Other)
  Sender: FDA-Public Use
  Company Number: NL-GLAXOSMITHKLINE-B0322634A

PATIENT
  Sex: Female
  Weight: 12 kg

DRUGS (2)
  1. AMOXICILLIN TRIHYDRATE [Suspect]
     Dosage: 125MG THREE TIMES PER DAY
     Route: 048
     Dates: start: 20040127, end: 20040202
  2. CO TRIMOXAZOLE [Concomitant]
     Dosage: 144MG THREE TIMES PER DAY
     Route: 048
     Dates: start: 20031125

REACTIONS (7)
  - ASTHENIA [None]
  - BODY TEMPERATURE DECREASED [None]
  - COLD SWEAT [None]
  - EPILEPSY [None]
  - LOSS OF CONSCIOUSNESS [None]
  - PYREXIA [None]
  - SCREAMING [None]
